FAERS Safety Report 5805887-3 (Version None)
Quarter: 2008Q3

REPORT INFORMATION
  Report Type: 
  Country: None (occurrence: None)
  Receive Date: 20080709
  Receipt Date: 20080709
  Transmission Date: 20090109
  Serious: Yes (Life-Threatening)
  Sender: FDA-Public Use
  Company Number: None

PATIENT
  Age: 62 Year
  Sex: Male
  Weight: 136 kg

DRUGS (1)
  1. METOLAZONE [Suspect]
     Indication: HYPERTENSION
     Dosage: 5 MG BID PO
     Route: 048
     Dates: start: 20080429, end: 20080506

REACTIONS (4)
  - DEHYDRATION [None]
  - DIZZINESS [None]
  - HYPOTENSION [None]
  - RENAL FAILURE ACUTE [None]
